FAERS Safety Report 4660774-1 (Version None)
Quarter: 2005Q2

REPORT INFORMATION
  Report Type: 
  Country: None (occurrence: None)
  Receive Date: 20050511
  Receipt Date: 20050429
  Transmission Date: 20051028
  Serious: Yes (Life-Threatening)
  Sender: FDA-Public Use
  Company Number: HQWYE456629APR05

PATIENT
  Age: 56 Year
  Sex: Male

DRUGS (9)
  1. MYLOTARG [Suspect]
     Indication: ACUTE MYELOID LEUKAEMIA
     Dosage: 18.7 MG 1X PER 1 DAY, INTRAVENOUS
     Route: 042
     Dates: start: 20050421, end: 20050421
  2. AMPICILLIN [Concomitant]
  3. LEVOFLOXACIN [Concomitant]
  4. DEXAMETHASONE [Concomitant]
  5. CEFEPIME (CEFEPIME) [Concomitant]
  6. TRETINOIN [Concomitant]
  7. VANCOMYCIN [Concomitant]
  8. ALLOPURINOL [Concomitant]
  9. PANTOPRAZOLE (PANTOPRAZOLE) [Concomitant]

REACTIONS (6)
  - BRAIN OEDEMA [None]
  - CEREBRAL ARTERY OCCLUSION [None]
  - CONVULSION [None]
  - HYPOXIA [None]
  - ISCHAEMIC STROKE [None]
  - PROCEDURAL COMPLICATION [None]
